FAERS Safety Report 4648404-6 (Version None)
Quarter: 2005Q2

REPORT INFORMATION
  Report Type: 
  Country: None (occurrence: None)
  Receive Date: 20050429
  Receipt Date: 20050420
  Transmission Date: 20051028
  Serious: Yes (Hospitalization)
  Sender: FDA-Public Use
  Company Number: JP-SP-2005-00784

PATIENT
  Age: 79 Year
  Sex: Male

DRUGS (4)
  1. IMMUCYST [Suspect]
     Indication: BLADDER CANCER
     Route: 043
     Dates: start: 20050330
  2. BICALUTAMIDE [Concomitant]
     Dosage: 80 MG/DAY
  3. NAFTOPIDIL [Concomitant]
     Dosage: 50MG/DAY
  4. TEPRENONE [Concomitant]
     Dosage: 150MG/DAY

REACTIONS (2)
  - PYREXIA [None]
  - RENAL FAILURE ACUTE [None]
